FAERS Safety Report 13290055 (Version 2)
Quarter: 2017Q1

REPORT INFORMATION
  Report Type: Spontaneous
  Country: IT (occurrence: IT)
  Receive Date: 20170302
  Receipt Date: 20170308
  Transmission Date: 20170428
  Serious: Yes (Life-Threatening, Other)
  Sender: FDA-Public Use
  Company Number: PHBS1987IT00070

PATIENT
  Sex: Male

DRUGS (5)
  1. AMPICILLIN [Concomitant]
     Active Substance: AMPICILLIN
     Indication: FOETAL EXPOSURE DURING PREGNANCY
     Dosage: MATERNAL DOSE: 2 G, QD
     Route: 064
  2. CICLOSPORIN [Suspect]
     Active Substance: CYCLOSPORINE
     Dosage: MATERNAL DOSE:7 MG/KG, QD
     Route: 064
  3. PREDNISONE. [Concomitant]
     Active Substance: PREDNISONE
     Indication: FOETAL EXPOSURE DURING PREGNANCY
     Dosage: MATERNAL DOSE: 25 MG, QD (GRADUALLY REDUCED)
     Route: 064
  4. CICLOSPORIN [Suspect]
     Active Substance: CYCLOSPORINE
     Indication: FOETAL EXPOSURE DURING PREGNANCY
     Dosage: MATERNAL DOSE: 17 MG/KG, QD
     Route: 064
  5. CICLOSPORIN [Suspect]
     Active Substance: CYCLOSPORINE
     Dosage: MATERNAL DOSE: 6.5 MG/KG, QD
     Route: 064

REACTIONS (6)
  - Hyperbilirubinaemia [Unknown]
  - Foetal exposure during pregnancy [Unknown]
  - Premature baby [Unknown]
  - Jaundice neonatal [Unknown]
  - Convulsion neonatal [Unknown]
  - Respiratory failure [Unknown]
